FAERS Safety Report 8328064-3 (Version None)
Quarter: 2012Q2

REPORT INFORMATION
  Report Type: 
  Country: None (occurrence: None)
  Receive Date: 20120502
  Receipt Date: 20120423
  Transmission Date: 20120825
  Serious: Yes (Hospitalization)
  Sender: FDA-Public Use
  Company Number: US-BAYER-2011-091709

PATIENT
  Age: 32 Year
  Sex: Female
  Weight: 92.2 kg

DRUGS (6)
  1. AMBIEN [Concomitant]
  2. PREVACID [Concomitant]
     Dosage: 30 MG,DAILY,  UNK
     Route: 048
     Dates: start: 20061102
  3. ADIPEX [Concomitant]
     Dosage: 37.5 MG. HALF DAILY TABLET, UNK
     Route: 048
     Dates: start: 20061102
  4. PERCOCET [Concomitant]
  5. SYNTHROID [Concomitant]
     Dosage: HALF 0.075 DAILY, UNK
     Route: 048
     Dates: start: 20061102
  6. YASMIN [Suspect]
     Dosage: UNK
     Dates: start: 20061001, end: 20061101

REACTIONS (8)
  - ANXIETY [None]
  - INJURY [None]
  - GENERAL PHYSICAL HEALTH DETERIORATION [None]
  - ANHEDONIA [None]
  - PAIN [None]
  - EMOTIONAL DISTRESS [None]
  - PANIC ATTACK [None]
  - PULMONARY EMBOLISM [None]
